FAERS Safety Report 7920088-0 (Version None)
Quarter: 2011Q4

REPORT INFORMATION
  Report Type: 
  Country: None (occurrence: None)
  Receive Date: 20111115
  Receipt Date: 20111102
  Transmission Date: 20120403
  Serious: Yes (Hospitalization, Other)
  Sender: FDA-Public Use
  Company Number: DSA_44446_2010

PATIENT
  Age: 30 Year
  Sex: Female

DRUGS (3)
  1. AMIODARONE HYDROCHLORIDE [Suspect]
     Indication: INTENTIONAL OVERDOSE
     Dosage: (NOT THE PRESCRIBED AMOUNT;ONCE)
  2. DILTIAZEM HCL [Suspect]
     Indication: INTENTIONAL OVERDOSE
     Dosage: (NOT THE PRESCRIBED AMOUNT;ONCE)
  3. METOPROLOL TARTRATE [Suspect]
     Indication: INTENTIONAL OVERDOSE
     Dosage: (NOT THE PRESCRIBED AMOUNT;ONCE)

REACTIONS (20)
  - DRUG INEFFECTIVE [None]
  - CARDIOGENIC SHOCK [None]
  - CARDIAC ARREST [None]
  - HYPOTENSION [None]
  - HYPERTROPHIC CARDIOMYOPATHY [None]
  - BLOOD GLUCOSE INCREASED [None]
  - HYPOKALAEMIA [None]
  - MULTIPLE DRUG OVERDOSE [None]
  - HEART RATE DECREASED [None]
  - ANURIA [None]
  - EJECTION FRACTION DECREASED [None]
  - MITRAL VALVE INCOMPETENCE [None]
  - ARRHYTHMIA [None]
  - PULSELESS ELECTRICAL ACTIVITY [None]
  - ABDOMINAL PAIN [None]
  - NERVOUS SYSTEM DISORDER [None]
  - BLOOD PRESSURE DECREASED [None]
  - HYPOGLYCAEMIA [None]
  - SINUS BRADYCARDIA [None]
  - CONFUSIONAL STATE [None]
